FAERS Safety Report 12481784 (Version 1)
Quarter: 2016Q2

REPORT INFORMATION
  Report Type: Spontaneous
  Country: US (occurrence: US)
  Receive Date: 20160620
  Receipt Date: 20160620
  Transmission Date: 20160815
  Serious: No
  Sender: FDA-Public Use
  Company Number: US-BAUSCH-BL-2015-020186

PATIENT
  Age: 61 Year
  Sex: Male

DRUGS (2)
  1. PROVENGE [Suspect]
     Active Substance: SIPULEUCEL-T
     Indication: PRODUCT USED FOR UNKNOWN INDICATION
     Route: 042
     Dates: start: 20150723, end: 20150723
  2. PROVENGE [Suspect]
     Active Substance: SIPULEUCEL-T
     Route: 042
     Dates: start: 20150806, end: 20150806

REACTIONS (5)
  - Neutrophil count decreased [Unknown]
  - Nausea [Unknown]
  - Malaise [Unknown]
  - Abdominal pain upper [Unknown]
  - Discomfort [Unknown]

NARRATIVE: CASE EVENT DATE: 201508
